FAERS Safety Report 4874562-4 (Version None)
Quarter: 2006Q1

REPORT INFORMATION
  Report Type: 
  Country: None (occurrence: None)
  Receive Date: 20060106
  Receipt Date: 20051230
  Transmission Date: 20060701
  Serious: Yes (Other)
  Sender: FDA-Public Use
  Company Number: GB-ABBOTT-06P-167-0320999-00

PATIENT
  Sex: Male

DRUGS (3)
  1. VALPROATE SODIUM [Suspect]
     Indication: DRUG EXPOSURE DURING PREGNANCY
  2. VENLAFAXINE HCL [Suspect]
     Indication: DRUG EXPOSURE DURING PREGNANCY
  3. VENLAFAXINE HCL [Suspect]
     Dates: start: 20050101

REACTIONS (2)
  - POLYDACTYLY [None]
  - PREMATURE BABY [None]
